FAERS Safety Report 11661221 (Version 6)
Quarter: 2016Q1

REPORT INFORMATION
  Report Type: Report from Study
  Country: US (occurrence: US)
  Receive Date: 20151026
  Receipt Date: 20160309
  Transmission Date: 20160525
  Serious: Yes (Other)
  Sender: FDA-Public Use
  Company Number: US-MALLINCKRODT-T201503817

PATIENT
  Age: 70 Year
  Sex: Male

DRUGS (8)
  1. REPOSITORY CORTICOTROPIN INJECTION [Suspect]
     Active Substance: CORTICOTROPIN
     Dosage: 72 UNITS 3X/WEEK
     Route: 058
     Dates: start: 201509, end: 201509
  2. REPOSITORY CORTICOTROPIN INJECTION [Suspect]
     Active Substance: CORTICOTROPIN
     Dosage: 48-56 UNITS 3X/WEEK
     Route: 058
  3. REPOSITORY CORTICOTROPIN INJECTION [Suspect]
     Active Substance: CORTICOTROPIN
     Dosage: 40U-64U 3X/WEEK
     Route: 058
     Dates: end: 20160127
  4. OXYCODONE [Concomitant]
     Active Substance: OXYCODONE
     Dosage: UNK, 3X/DAY
  5. REPOSITORY CORTICOTROPIN INJECTION [Suspect]
     Active Substance: CORTICOTROPIN
     Indication: ANKYLOSING SPONDYLITIS
     Dosage: 80 UNITS 2X/WEEK
     Route: 058
     Dates: start: 20150731, end: 201509
  6. REPOSITORY CORTICOTROPIN INJECTION [Suspect]
     Active Substance: CORTICOTROPIN
     Dosage: 64 UNITS 3X/WEEK
     Route: 058
     Dates: start: 201509
  7. PREDNISONE. [Concomitant]
     Active Substance: PREDNISONE
     Dosage: UNK
  8. PREDNISONE. [Concomitant]
     Active Substance: PREDNISONE
     Dosage: 20MG/DAY

REACTIONS (18)
  - Atrial fibrillation [Not Recovered/Not Resolved]
  - Dysphonia [Recovered/Resolved]
  - Rhinorrhoea [Recovered/Resolved]
  - Fatigue [Not Recovered/Not Resolved]
  - Increased appetite [Not Recovered/Not Resolved]
  - Oedema peripheral [Recovered/Resolved]
  - Anger [Not Recovered/Not Resolved]
  - Drug effect decreased [Recovering/Resolving]
  - Increased tendency to bruise [Not Recovered/Not Resolved]
  - Impaired healing [Not Recovered/Not Resolved]
  - Thyroid mass [Not Recovered/Not Resolved]
  - Arrhythmia [Not Recovered/Not Resolved]
  - Injection site bruising [Not Recovered/Not Resolved]
  - Weight increased [Not Recovered/Not Resolved]
  - Chest pain [Recovering/Resolving]
  - Blood pressure abnormal [Recovered/Resolved]
  - Skin discolouration [Not Recovered/Not Resolved]
  - Varicose vein [Not Recovered/Not Resolved]

NARRATIVE: CASE EVENT DATE: 20150903
